FAERS Safety Report 6318800-X (Version None)
Quarter: 2009Q3

REPORT INFORMATION
  Report Type: 
  Country: None (occurrence: None)
  Receive Date: 20090821
  Receipt Date: 20090812
  Transmission Date: 20100115
  Serious: Yes (Life-Threatening, Hospitalization)
  Sender: FDA-Public Use
  Company Number: CH-WYE-G04230509

PATIENT
  Age: 63 Year
  Sex: Female

DRUGS (23)
  1. PIPERACILLIN SODIUM AND TAZOBACTAM SODIUM [Suspect]
     Route: 042
     Dates: start: 20090728, end: 20090803
  2. CELLCEPT [Concomitant]
  3. PREDNISONE [Concomitant]
     Dosage: ALTERNATING 20 AND 15 MG PER DAY
     Route: 048
  4. BACTRIM DS [Concomitant]
     Dosage: UNKNOWN DOSE THREE TIMES PER WEEK
  5. NEXIUM [Concomitant]
     Route: 048
  6. SPORANOX [Concomitant]
  7. BELOC ZOK [Concomitant]
     Route: 048
  8. VALCYTE [Concomitant]
  9. ROCALTROL [Concomitant]
     Route: 048
  10. ZESTRIL [Concomitant]
  11. MARCUMAR [Concomitant]
     Dosage: CYCLIC
  12. MOTILIUM [Concomitant]
     Route: 048
  13. TOREM [Concomitant]
  14. ALDACTONE [Concomitant]
     Route: 048
  15. KCL-RETARD [Concomitant]
  16. GALENIC /ASCORBIC ACID/CALCIUM/ [Concomitant]
  17. MAGNESIOCARD [Concomitant]
  18. FUNGIZONE [Concomitant]
  19. COLISTIN SULFATE [Concomitant]
  20. IMMUNOGLOBULINS [Concomitant]
     Dosage: INITIALLY 10G I.V. PER WEEK AND THEN 20MG PER MONTH
     Dates: start: 20090210, end: 20090717
  21. ACTRAPID PENFILL [Concomitant]
     Dosage: CYCLIC
  22. RITUXIMAB [Concomitant]
     Route: 042
     Dates: start: 20090217, end: 20090309
  23. SANDIMMUNE [Concomitant]
     Route: 042

REACTIONS (3)
  - CONDITION AGGRAVATED [None]
  - INTERNATIONAL NORMALISED RATIO INCREASED [None]
  - STAPHYLOCOCCAL SEPSIS [None]
